FAERS Safety Report 7202907-9 (Version None)
Quarter: 2010Q4

REPORT INFORMATION
  Report Type: 
  Country: None (occurrence: None)
  Receive Date: 20101229
  Receipt Date: 20101227
  Transmission Date: 20110411
  Serious: Yes (Other)
  Sender: FDA-Public Use
  Company Number: BR-PFIZER INC-2010179498

PATIENT
  Age: 42 Year
  Sex: Female
  Weight: 48 kg

DRUGS (1)
  1. DEPO-PROVERA [Suspect]
     Indication: ENDOMETRIOSIS
     Dosage: UNK
     Route: 030
     Dates: start: 19890101

REACTIONS (2)
  - ENDOMETRIOSIS [None]
  - WEIGHT INCREASED [None]
